FAERS Safety Report 10630609 (Version 1)
Quarter: 2014Q4

REPORT INFORMATION
  Report Type: Spontaneous
  Country: US (occurrence: US)
  Receive Date: 20141205
  Receipt Date: 20141205
  Transmission Date: 20150529
  Serious: No
  Sender: FDA-Public Use
  Company Number: US-BRISTOL-MYERS SQUIBB COMPANY-21455506

PATIENT
  Age: 75 Year
  Sex: Female
  Weight: 136.05 kg

DRUGS (18)
  1. BYETTA [Suspect]
     Active Substance: EXENATIDE
     Indication: TYPE 2 DIABETES MELLITUS
  2. CODEINE [Concomitant]
     Active Substance: CODEINE
  3. LIDODERM [Concomitant]
     Active Substance: LIDOCAINE
  4. VOLTAREN [Concomitant]
     Active Substance: DICLOFENAC SODIUM
  5. TOPROL XL [Concomitant]
     Active Substance: METOPROLOL SUCCINATE
  6. DULERA [Concomitant]
     Active Substance: FORMOTEROL FUMARATE DIHYDRATE\MOMETASONE FUROATE
  7. LASIX [Concomitant]
     Active Substance: FUROSEMIDE
  8. FOLATE [Concomitant]
     Active Substance: FOLATE SODIUM
  9. JANUVIA [Concomitant]
     Active Substance: SITAGLIPTIN PHOSPHATE
  10. PREVACID [Concomitant]
     Active Substance: LANSOPRAZOLE
  11. ALBUTEROL. [Concomitant]
     Active Substance: ALBUTEROL
  12. L-THYROXINE [Concomitant]
     Active Substance: LEVOTHYROXINE
  13. PREMARIN [Concomitant]
     Active Substance: ESTROGENS, CONJUGATED
  14. EPIPEN [Concomitant]
     Active Substance: EPINEPHRINE
  15. VITAMIN C [Concomitant]
     Active Substance: ASCORBIC ACID
  16. ASPIRIN. [Concomitant]
     Active Substance: ASPIRIN
  17. GLYBURIDE. [Concomitant]
     Active Substance: GLYBURIDE
  18. NITROGLYCERIN. [Concomitant]
     Active Substance: NITROGLYCERIN

REACTIONS (1)
  - Drug ineffective [Unknown]
